FAERS Safety Report 15582951 (Version 5)
Quarter: 2019Q3

REPORT INFORMATION
  Report Type: Report from Study
  Country: None (occurrence: US)
  Receive Date: 20181105
  Receipt Date: 20190820
  Transmission Date: 20191004
  Serious: Yes (Hospitalization, Other)
  Sender: FDA-Public Use
  Company Number: US-ABBVIE-18K-163-2540669-00

PATIENT
  Age: 78 Year
  Sex: Male
  Weight: 86.26 kg

DRUGS (15)
  1. CRESTOR [Concomitant]
     Active Substance: ROSUVASTATIN CALCIUM
     Indication: BLOOD CHOLESTEROL ABNORMAL
  2. ALIGN [Concomitant]
     Active Substance: BIFIDOBACTERIUM LONGUM SUBSP. INFANTIS
     Indication: PROBIOTIC THERAPY
  3. CARVEDILOL. [Concomitant]
     Active Substance: CARVEDILOL
     Indication: HEART RATE INCREASED
  4. CHOLESTYRAMINE. [Concomitant]
     Active Substance: CHOLESTYRAMINE
     Indication: ABNORMAL FAECES
  5. VITAMIN B12 [Concomitant]
     Active Substance: CYANOCOBALAMIN
     Indication: VITAMIN B12 DECREASED
  6. SYNTHROID [Concomitant]
     Active Substance: LEVOTHYROXINE SODIUM
     Indication: THYROID THERAPY
  7. HUMIRA [Suspect]
     Active Substance: ADALIMUMAB
     Route: 058
     Dates: start: 201810
  8. RANITIDINE. [Concomitant]
     Active Substance: RANITIDINE
     Indication: DYSPEPSIA
  9. TYLENOL ARTHRITIS PAIN [Concomitant]
     Active Substance: ACETAMINOPHEN
     Indication: ARTHRITIS
  10. FLOMAX [Concomitant]
     Active Substance: TAMSULOSIN HYDROCHLORIDE
     Indication: URINE FLOW DECREASED
  11. CARVEDILOL. [Concomitant]
     Active Substance: CARVEDILOL
     Indication: HYPERTENSION
  12. OMEPRAZOLE. [Concomitant]
     Active Substance: OMEPRAZOLE
     Indication: DYSPEPSIA
  13. HUMIRA [Suspect]
     Active Substance: ADALIMUMAB
     Indication: CROHN^S DISEASE
     Route: 058
     Dates: start: 201601, end: 20180528
  14. ASPIRIN. [Concomitant]
     Active Substance: ASPIRIN
     Indication: ANTICOAGULANT THERAPY
  15. LOSARTAN AND HYDROCHLOROTHIAZIDE [Concomitant]
     Active Substance: HYDROCHLOROTHIAZIDE\LOSARTAN POTASSIUM
     Indication: HYPERTENSION

REACTIONS (9)
  - Vitamin D deficiency [Not Recovered/Not Resolved]
  - Intestinal stenosis [Recovered/Resolved]
  - Intestinal obstruction [Recovered/Resolved]
  - Blood pressure decreased [Recovered/Resolved]
  - Anaemia [Not Recovered/Not Resolved]
  - Haemoglobin decreased [Recovered/Resolved]
  - Scoliosis [Not Recovered/Not Resolved]
  - Haemoglobin decreased [Unknown]
  - Haemorrhage [Unknown]

NARRATIVE: CASE EVENT DATE: 201806
